FAERS Safety Report 8565450-0 (Version None)
Quarter: 2012Q3

REPORT INFORMATION
  Report Type: 
  Country: None (occurrence: None)
  Receive Date: 20120803
  Receipt Date: 20120727
  Transmission Date: 20120928
  Serious: Yes (Life-Threatening, Hospitalization, Disabling)
  Sender: FDA-Public Use
  Company Number: GB-009507513-1207GBR003012

PATIENT

DRUGS (8)
  1. ETHAMBUTOL HYDROCHLORIDE [Concomitant]
  2. METOCLOPRAMIDE [Concomitant]
  3. TRUVADA [Concomitant]
     Dosage: UNK
  4. PREDNISOLONE [Concomitant]
  5. ISENTRESS [Suspect]
     Indication: HIV INFECTION
     Dosage: UNK
     Route: 048
     Dates: start: 20110613, end: 20111220
  6. AZASITE [Concomitant]
  7. PYRIDOXINE HCL [Concomitant]
  8. RIFATER [Concomitant]

REACTIONS (3)
  - DYSPNOEA [None]
  - BRONCHIOLITIS [None]
  - INTERSTITIAL LUNG DISEASE [None]
